FAERS Safety Report 21112787 (Version 2)
Quarter: 2022Q3

REPORT INFORMATION
  Report Type: Spontaneous
  Country: US (occurrence: None)
  Receive Date: 20220721
  Receipt Date: 20220817
  Transmission Date: 20221026
  Serious: Yes (Other)
  Sender: FDA-Public Use
  Company Number: 2022A235728

PATIENT
  Sex: Female
  Weight: 50.8 kg

DRUGS (4)
  1. EVUSHELD [Suspect]
     Active Substance: CILGAVIMAB\TIXAGEVIMAB
     Indication: Immunodeficiency
     Dosage: 150MG OF TIXAGEVIMAB AND 150MG OF CILGAVIMAB
     Route: 030
     Dates: start: 202202
  2. EVUSHELD [Suspect]
     Active Substance: CILGAVIMAB\TIXAGEVIMAB
     Indication: Immunodeficiency
     Dosage: 150MG OF TIXAGEVIMAB AND 150MG OF CILGAVIMAB
     Route: 030
     Dates: start: 202205
  3. WARFARIN [Concomitant]
     Active Substance: WARFARIN
     Route: 065
  4. SOTALOL [Concomitant]
     Active Substance: SOTALOL
     Route: 065

REACTIONS (1)
  - Atrial fibrillation [Recovered/Resolved]
